FAERS Safety Report 11214436 (Version 1)
Quarter: 2015Q2

REPORT INFORMATION
  Report Type: Spontaneous
  Country: GB (occurrence: GB)
  Receive Date: 20150624
  Receipt Date: 20150624
  Transmission Date: 20150821
  Serious: Yes (Other)
  Sender: FDA-Public Use
  Company Number: GB-ACCORD-031536

PATIENT
  Age: 66 Year
  Sex: Male
  Weight: 88.4 kg

DRUGS (4)
  1. DIGOXIN. [Concomitant]
     Active Substance: DIGOXIN
     Dosage: GLUTEN FREE
  2. ALLOPURINOL ACCORD [Suspect]
     Active Substance: ALLOPURINOL
     Indication: GOUT
     Route: 048
     Dates: start: 20150601, end: 20150603
  3. RAMIPRIL. [Concomitant]
     Active Substance: RAMIPRIL
     Dosage: GLUTEN FREE
  4. WARFARIN [Concomitant]
     Active Substance: WARFARIN
     Dosage: GLUTEN FREE

REACTIONS (3)
  - Abdominal distension [Recovering/Resolving]
  - Dyspnoea [Recovering/Resolving]
  - Medication error [Unknown]

NARRATIVE: CASE EVENT DATE: 20150601
